FAERS Safety Report 5029995-2 (Version None)
Quarter: 2006Q2

REPORT INFORMATION
  Report Type: 
  Country: None (occurrence: None)
  Receive Date: 20060614
  Receipt Date: 20060601
  Transmission Date: 20061013
  Serious: Yes (Life-Threatening)
  Sender: FDA-Public Use
  Company Number: 2006P1000329

PATIENT
  Age: 78 Year
  Sex: Male
  Weight: 78 kg

DRUGS (8)
  1. RETEPLASE (RETEPLASE) [Suspect]
     Indication: ACUTE MYOCARDIAL INFARCTION
     Dosage: IV
     Route: 042
  2. REOPRO [Suspect]
     Indication: ACUTE MYOCARDIAL INFARCTION
     Dosage: IV
     Route: 042
     Dates: start: 20060104
  3. ASPIRIN [Concomitant]
  4. FUROSEMIDE [Concomitant]
  5. BISOPROLOL [Concomitant]
  6. CLOPIDOGREL [Concomitant]
  7. ATORVASTATIN CALCIUM [Concomitant]
  8. LANSOPRAZOLE [Concomitant]

REACTIONS (7)
  - CARDIAC PROCEDURE COMPLICATION [None]
  - CORONARY ARTERY DISEASE [None]
  - CORONARY ARTERY OCCLUSION [None]
  - CORONARY ARTERY PERFORATION [None]
  - IATROGENIC INJURY [None]
  - PERICARDIAL EFFUSION [None]
  - VENTRICULAR TACHYCARDIA [None]
